FAERS Safety Report 10670581 (Version 1)
Quarter: 2014Q4

REPORT INFORMATION
  Report Type: Spontaneous
  Country: MX (occurrence: None)
  Receive Date: 20141219
  Receipt Date: 20141219
  Transmission Date: 20150529
  Serious: No
  Sender: FDA-Public Use
  Company Number: A1084068A

PATIENT
  Age: 48 Year
  Sex: Female

DRUGS (1)
  1. PAROXETINE HYDROCHLORIDE TABLETS [Suspect]
     Active Substance: PAROXETINE HYDROCHLORIDE
     Indication: AUTONOMIC NERVOUS SYSTEM IMBALANCE
     Route: 048
     Dates: start: 20140307

REACTIONS (2)
  - Drug administration error [None]
  - Off label use [None]

NARRATIVE: CASE EVENT DATE: 20140307
